FAERS Safety Report 9925088 (Version 1)
Quarter: 2014Q1

REPORT INFORMATION
  Report Type: Spontaneous
  Country: US (occurrence: None)
  Receive Date: 20140225
  Receipt Date: 20140225
  Transmission Date: 20141002
  Serious: Yes (Disabling)
  Sender: FDA-Public Use
  Company Number: None

PATIENT
  Age: 67 Year
  Sex: Female
  Weight: 47.63 kg

DRUGS (1)
  1. CITALOPRAM [Suspect]
     Indication: SLEEP DISORDER
     Route: 048
     Dates: start: 20140124, end: 20140215

REACTIONS (7)
  - Malaise [None]
  - Abdominal pain upper [None]
  - Nausea [None]
  - Decreased appetite [None]
  - Weight decreased [None]
  - Fatigue [None]
  - Product quality issue [None]
